FAERS Safety Report 6105237-1 (Version None)
Quarter: 2009Q1

REPORT INFORMATION
  Report Type: 
  Country: None (occurrence: None)
  Receive Date: 20090304
  Receipt Date: 20090223
  Transmission Date: 20090719
  Serious: Yes (Hospitalization)
  Sender: FDA-Public Use
  Company Number: JPI-P-005926

PATIENT
  Age: 57 Year
  Sex: Female
  Weight: 66.6788 kg

DRUGS (27)
  1. XYREM [Suspect]
     Indication: INSOMNIA
     Dosage: SEE IMAGE
     Route: 048
     Dates: start: 20050420, end: 20080701
  2. XYREM [Suspect]
     Indication: RAPID EYE MOVEMENTS SLEEP ABNORMAL
     Dosage: SEE IMAGE
     Route: 048
     Dates: start: 20050420, end: 20080701
  3. XYREM [Suspect]
     Indication: INSOMNIA
     Dosage: SEE IMAGE
     Route: 048
     Dates: start: 20080701, end: 20081101
  4. XYREM [Suspect]
     Indication: RAPID EYE MOVEMENTS SLEEP ABNORMAL
     Dosage: SEE IMAGE
     Route: 048
     Dates: start: 20080701, end: 20081101
  5. XYREM [Suspect]
     Indication: INSOMNIA
     Dosage: SEE IMAGE
     Route: 048
     Dates: start: 20081101, end: 20090116
  6. XYREM [Suspect]
     Indication: RAPID EYE MOVEMENTS SLEEP ABNORMAL
     Dosage: SEE IMAGE
     Route: 048
     Dates: start: 20081101, end: 20090116
  7. XYREM [Suspect]
     Indication: INSOMNIA
     Dosage: SEE IMAGE
     Route: 048
     Dates: start: 20090101
  8. XYREM [Suspect]
     Indication: RAPID EYE MOVEMENTS SLEEP ABNORMAL
     Dosage: SEE IMAGE
     Route: 048
     Dates: start: 20090101
  9. XYREM [Suspect]
     Indication: INSOMNIA
     Dosage: SEE IMAGE
     Route: 048
     Dates: start: 20090101
  10. XYREM [Suspect]
     Indication: RAPID EYE MOVEMENTS SLEEP ABNORMAL
     Dosage: SEE IMAGE
     Route: 048
     Dates: start: 20090101
  11. XYREM [Suspect]
     Indication: INSOMNIA
     Dosage: SEE IMAGE
     Route: 048
     Dates: start: 20090117
  12. XYREM [Suspect]
     Indication: RAPID EYE MOVEMENTS SLEEP ABNORMAL
     Dosage: SEE IMAGE
     Route: 048
     Dates: start: 20090117
  13. DULOXETINE HYDROCHLORIDE [Suspect]
     Indication: DEPRESSION
     Dosage: 6 GM (3 GM, 2 IN 1 D), ORAL
     Route: 048
     Dates: start: 20040101, end: 20081101
  14. ALPRAZOLAM [Concomitant]
  15. FENTANYL (POULTICE OR PATCH) [Concomitant]
  16. HYDROMORPHONE HYDROCHLORIDE [Concomitant]
  17. ESTROGEN AND PROGESTIN (POULTICE OR PATCH) [Concomitant]
  18. LEVOTHYROXINE SODIUM [Concomitant]
  19. CLONIDINE [Concomitant]
  20. DESLORATADINE [Concomitant]
  21. PANTOPRAZOLE SODIUM [Concomitant]
  22. DARIFENACIN [Concomitant]
  23. IRBESARTAN [Concomitant]
  24. AMLODIPINE BESYLATE WITH ATORVASTATIN CALCIUM [Concomitant]
  25. PENTOSAN POLYSULFATE SODIUM [Concomitant]
  26. OMEGA-3 ACID ETHYL ESTERS [Concomitant]
  27. HYOSCYAMINE/METHENAMINE/METHYLENE BLUE/PHENYL SALICYLATE/SODIUM BIPHOS [Concomitant]

REACTIONS (7)
  - ALOPECIA [None]
  - AMNESIA [None]
  - BREAST PAIN [None]
  - CONTUSION [None]
  - DRUG INEFFECTIVE [None]
  - SEROTONIN SYNDROME [None]
  - UNRESPONSIVE TO STIMULI [None]
